FAERS Safety Report 13230730 (Version 1)
Quarter: 2017Q1

REPORT INFORMATION
  Report Type: Spontaneous
  Country: US (occurrence: US)
  Receive Date: 20170214
  Receipt Date: 20170214
  Transmission Date: 20170428
  Serious: No
  Sender: FDA-Public Use
  Company Number: None

PATIENT
  Age: 67 Year
  Sex: Male
  Weight: 83.92 kg

DRUGS (4)
  1. METOPROLOL. [Suspect]
     Active Substance: METOPROLOL
  2. PLAVIX [Suspect]
     Active Substance: CLOPIDOGREL BISULFATE
  3. LISINOPRIL. [Suspect]
     Active Substance: LISINOPRIL
  4. CORDIS CYPER RX STENT [Suspect]
     Active Substance: DEVICE
     Dosage: ITS NOT LISTED, CONVEINENTLY CAUSE OF JUMBLED UP LOG REPORTS
     Dates: start: 20080321

REACTIONS (4)
  - Thrombosis [None]
  - Thrombocytopenia [None]
  - Device occlusion [None]
  - Immune system disorder [None]

NARRATIVE: CASE EVENT DATE: 20100321
